FAERS Safety Report 5563555-X (Version None)
Quarter: 2007Q4

REPORT INFORMATION
  Report Type: 
  Country: None (occurrence: None)
  Receive Date: 20071214
  Receipt Date: 20071214
  Transmission Date: 20080405
  Serious: Yes (Hospitalization)
  Sender: FDA-Public Use
  Company Number: None

PATIENT
  Sex: Male

DRUGS (1)
  1. IRESSA [Suspect]
     Indication: METASTATIC NEOPLASM
     Dosage: 750MG PO QD
     Route: 048
     Dates: start: 20071023, end: 20071210

REACTIONS (4)
  - HEPATIC ENZYME INCREASED [None]
  - LOSS OF CONSCIOUSNESS [None]
  - OVERDOSE [None]
  - PNEUMONIA [None]
